FAERS Safety Report 4414783-8 (Version None)
Quarter: 2004Q3

REPORT INFORMATION
  Report Type: 
  Country: None (occurrence: None)
  Receive Date: 20040804
  Receipt Date: 20030929
  Transmission Date: 20050211
  Serious: No
  Sender: FDA-Public Use
  Company Number: US-BRISTOL-MYERS SQUIBB COMPANY-12396198

PATIENT
  Age: 77 Year
  Sex: Male
  Weight: 103 kg

DRUGS (3)
  1. GLUCOVANCE [Suspect]
     Indication: DIABETES MELLITUS NON-INSULIN-DEPENDENT
     Dosage: DOSAGE FORM = TABLET = 2.5MG/500MG
     Route: 048
     Dates: start: 20030927
  2. TRIAMTERENE [Concomitant]
  3. VERAPAMIL [Concomitant]

REACTIONS (1)
  - HYPOGLYCAEMIA [None]
